FAERS Safety Report 8277493-5 (Version None)
Quarter: 2012Q2

REPORT INFORMATION
  Report Type: 
  Country: None (occurrence: None)
  Receive Date: 20120412
  Receipt Date: 20120412
  Transmission Date: 20120825
  Serious: Yes (Death)
  Sender: FDA-Public Use
  Company Number: PHHY2012DE023456

PATIENT

DRUGS (2)
  1. PREDNISONE TAB [Suspect]
     Indication: PROSTATE CANCER METASTATIC
     Dosage: 10 MG/DAY
     Route: 048
  2. CABAZITAXEL [Suspect]
     Indication: PROSTATE CANCER METASTATIC
     Dosage: 25 MG/M2, Q3W
     Dates: start: 20100901, end: 20110401

REACTIONS (1)
  - BONE MARROW FAILURE [None]
